FAERS Safety Report 4327832-2 (Version None)
Quarter: 2004Q1

REPORT INFORMATION
  Report Type: 
  Country: None (occurrence: None)
  Receive Date: 20040325
  Receipt Date: 20040312
  Transmission Date: 20041129
  Serious: Yes (Other)
  Sender: FDA-Public Use
  Company Number: ZONI001359

PATIENT
  Age: 51 Year
  Sex: Female

DRUGS (3)
  1. ZONEGRAN [Suspect]
     Indication: NEUROPATHY
     Dosage: 100 MG DAILY ORAL
     Route: 048
     Dates: start: 20040224, end: 20040303
  2. TRIAMTERENE (TRIAMTERENE) [Concomitant]
  3. OXYCONTIN [Concomitant]

REACTIONS (6)
  - BLOOD POTASSIUM DECREASED [None]
  - CELLULITIS [None]
  - HYPERSENSITIVITY [None]
  - PAIN IN EXTREMITY [None]
  - RASH [None]
  - SKIN ULCER [None]
